FAERS Safety Report 18633624 (Version 1)
Quarter: 2020Q4

REPORT INFORMATION
  Report Type: Spontaneous
  Country: JP (occurrence: JP)
  Receive Date: 20201218
  Receipt Date: 20201218
  Transmission Date: 20210114
  Serious: Yes (Other)
  Sender: FDA-Public Use
  Company Number: JP-PFIZER INC-A119218

PATIENT
  Age: 3 Year
  Sex: Female

DRUGS (13)
  1. VINCRISTINE [Concomitant]
     Active Substance: VINCRISTINE
  2. FLUCONAZOLE. [Suspect]
     Active Substance: FLUCONAZOLE
     Indication: PROPHYLAXIS
     Route: 042
     Dates: start: 199907, end: 199912
  3. ITRACONAZOLE. [Concomitant]
     Active Substance: ITRACONAZOLE
  4. ETOPOSIDE. [Concomitant]
     Active Substance: ETOPOSIDE
  5. SULBACTAM/AMPICILLIN [Concomitant]
     Active Substance: AMPICILLIN SODIUM\SULBACTAM SODIUM
  6. CEFPODOXIME [Concomitant]
     Active Substance: CEFPODOXIME
  7. CYTOSINE ARABINOSIDE [Concomitant]
     Active Substance: CYTARABINE
  8. CEFOZOPRAN [Concomitant]
     Active Substance: CEFOZOPRAN
  9. PREDNISOLONE. [Concomitant]
     Active Substance: PREDNISOLONE
  10. MITOXANTRONE [Concomitant]
     Active Substance: MITOXANTRONE HYDROCHLORIDE
  11. AMIKACIN. [Concomitant]
     Active Substance: AMIKACIN
  12. L-ASPARIGINASE [Concomitant]
  13. METHOTREXATE. [Concomitant]
     Active Substance: METHOTREXATE

REACTIONS (6)
  - Rash maculo-papular [Recovered/Resolved]
  - Diarrhoea [Recovered/Resolved]
  - Graft versus host disease [Recovered/Resolved]
  - Hypokalaemia [Recovered/Resolved]
  - Neutropenia [Recovered/Resolved]
  - Bronchopulmonary aspergillosis [Recovered/Resolved]

NARRATIVE: CASE EVENT DATE: 199907
